FAERS Safety Report 8021706-1 (Version None)
Quarter: 2012Q1

REPORT INFORMATION
  Report Type: 
  Country: None (occurrence: None)
  Receive Date: 20120104
  Receipt Date: 20111230
  Transmission Date: 20120608
  Serious: Yes (Hospitalization)
  Sender: FDA-Public Use
  Company Number: PHHY2011IN106023

PATIENT
  Age: 69 Year
  Sex: Female

DRUGS (8)
  1. ALEX [Concomitant]
  2. ULTRACET [Concomitant]
  3. LOSAR [Concomitant]
  4. ATIVAN [Concomitant]
  5. ZOLEDRONOC ACID [Suspect]
     Dosage: 5 MG/100 ML
     Route: 042
  6. CALCIUM CARBONATE + VITAMIN D3 [Concomitant]
  7. NEBICARD [Concomitant]
  8. CREMAFFIN [Concomitant]

REACTIONS (2)
  - OSTEOPOROTIC FRACTURE [None]
  - OSTEOPENIA [None]
